FAERS Safety Report 4735762-7 (Version None)
Quarter: 2005Q3

REPORT INFORMATION
  Report Type: 
  Country: None (occurrence: None)
  Receive Date: 20050805
  Receipt Date: 20050726
  Transmission Date: 20060218
  Serious: Yes (Hospitalization, Other)
  Sender: FDA-Public Use
  Company Number: GB-JNJFOC-20050105227

PATIENT
  Sex: Female

DRUGS (3)
  1. RISPERDAL [Suspect]
     Route: 048
  2. LITHIUM CARBONATE [Concomitant]
     Indication: DRUG THERAPY
     Dosage: 10 YEARS
  3. CARBAMAZEPINE [Concomitant]
     Indication: DRUG THERAPY

REACTIONS (14)
  - BLOOD CREATINE PHOSPHOKINASE INCREASED [None]
  - BLOOD PRESSURE FLUCTUATION [None]
  - CATATONIA [None]
  - DEPRESSION [None]
  - DYSPNOEA [None]
  - HALLUCINATION [None]
  - HYPOMANIA [None]
  - LIBIDO INCREASED [None]
  - MOOD ALTERED [None]
  - NEUROLEPTIC MALIGNANT SYNDROME [None]
  - PULSE ABNORMAL [None]
  - RESPIRATION ABNORMAL [None]
  - SLEEP DISORDER [None]
  - WHITE BLOOD CELL COUNT INCREASED [None]
